FAERS Safety Report 10787853 (Version 1)
Quarter: 2015Q1

REPORT INFORMATION
  Report Type: Spontaneous
  Country: US (occurrence: US)
  Receive Date: 20150212
  Receipt Date: 20150212
  Transmission Date: 20150721
  Serious: No
  Sender: FDA-Public Use
  Company Number: US-GLAXOSMITHKLINE-A1082373A

PATIENT

DRUGS (5)
  1. LAMICTAL [Suspect]
     Active Substance: LAMOTRIGINE
     Indication: SEIZURE
     Dosage: TOTAL DAILY DOSE OF 150 MG INCREASED TO 100 MG TWICE DAILY AT 200 MG DAILY
     Route: 048
     Dates: start: 2010
  2. CONDOM [Suspect]
     Active Substance: DEVICE
     Indication: CONTRACEPTION
  3. MORNING AFTER PILL [Suspect]
     Active Substance: UNSPECIFIED INGREDIENT
     Indication: ABORTION INDUCED
     Dates: start: 201407
  4. TYLENOL [Concomitant]
     Active Substance: ACETAMINOPHEN
  5. COLD MEDICINE [Concomitant]

REACTIONS (7)
  - Abortion induced [Unknown]
  - Nasal congestion [Unknown]
  - Muscle spasms [Unknown]
  - Unintended pregnancy [Unknown]
  - Drug ineffective [Unknown]
  - Exposure during pregnancy [Unknown]
  - Muscle tightness [Unknown]
